FAERS Safety Report 6242168-0 (Version None)
Quarter: 2009Q2

REPORT INFORMATION
  Report Type: 
  Country: None (occurrence: None)
  Receive Date: 20090624
  Receipt Date: 20090612
  Transmission Date: 20091009
  Serious: Yes (Hospitalization, Other)
  Sender: FDA-Public Use
  Company Number: JP-BAYER-200812214BYL

PATIENT
  Age: 44 Year
  Sex: Female

DRUGS (3)
  1. BETAFERON [Suspect]
     Indication: MULTIPLE SCLEROSIS
     Route: 058
     Dates: start: 20060711, end: 20060726
  2. STEROID PULSE [Concomitant]
     Indication: MULTIPLE SCLEROSIS
     Route: 065
     Dates: start: 20060601
  3. STEROID PULSE [Concomitant]
     Route: 065
     Dates: start: 20070901

REACTIONS (2)
  - AUTOIMMUNE HEPATITIS [None]
  - LIVER DISORDER [None]
